FAERS Safety Report 25998269 (Version 1)
Quarter: 2025Q4

REPORT INFORMATION
  Report Type: Spontaneous
  Country: US (occurrence: US)
  Receive Date: 20251105
  Receipt Date: 20251105
  Transmission Date: 20260117
  Serious: Yes (Other)
  Sender: SANOFI AVENTIS
  Company Number: US-SA-2025SA321297

PATIENT
  Age: 77 Year
  Sex: Female

DRUGS (3)
  1. DUPIXENT [Suspect]
     Active Substance: DUPILUMAB
     Indication: Chronic obstructive pulmonary disease
     Dosage: 600 MG, 1X
     Route: 058
     Dates: start: 202509, end: 202509
  2. DUPIXENT [Suspect]
     Active Substance: DUPILUMAB
     Indication: Asthma
     Dosage: 300 MG, QOW
     Route: 058
     Dates: start: 2025
  3. OFEV [Concomitant]
     Active Substance: NINTEDANIB
     Indication: Interstitial lung disease

REACTIONS (6)
  - Cataract [Unknown]
  - Ocular hyperaemia [Unknown]
  - Eye irritation [Unknown]
  - Dry eye [Unknown]
  - Eye pruritus [Unknown]
  - Keratomileusis [Unknown]

NARRATIVE: CASE EVENT DATE: 20250101
